FAERS Safety Report 10900859 (Version 3)
Quarter: 2016Q2

REPORT INFORMATION
  Report Type: Spontaneous
  Country: US (occurrence: US)
  Receive Date: 20150310
  Receipt Date: 20160629
  Transmission Date: 20160815
  Serious: No
  Sender: FDA-Public Use
  Company Number: US-PFIZER INC-2015081641

PATIENT
  Age: 73 Year
  Sex: Female
  Weight: 86 kg

DRUGS (1)
  1. PROTONIX [Suspect]
     Active Substance: PANTOPRAZOLE SODIUM
     Indication: GASTROOESOPHAGEAL REFLUX DISEASE
     Dosage: 40 MG, 1X/DAY
     Route: 048
     Dates: start: 2014

REACTIONS (6)
  - Dizziness [Unknown]
  - Fluid retention [Unknown]
  - Muscle spasms [Unknown]
  - Back pain [Unknown]
  - Burning sensation [Unknown]
  - Gastrooesophageal reflux disease [Unknown]
